FAERS Safety Report 10733642 (Version 1)
Quarter: 2015Q1

REPORT INFORMATION
  Report Type: Spontaneous
  Country: US (occurrence: US)
  Receive Date: 20150123
  Receipt Date: 20150123
  Transmission Date: 20150721
  Serious: Yes (Death, Other)
  Sender: FDA-Public Use
  Company Number: US-UCBSA-2015001949

PATIENT
  Age: 39 Year
  Sex: Male

DRUGS (5)
  1. HYDROCODONE BITARTRATE AND ACETAMINOPHEN [Suspect]
     Active Substance: ACETAMINOPHEN\HYDROCODONE BITARTRATE
     Dosage: UNKNOWN DOSE
  2. ETHANOL [Suspect]
     Active Substance: ALCOHOL
     Dosage: UNKNOWN DOSE
  3. AMITRIPTYLINE [Suspect]
     Active Substance: AMITRIPTYLINE
     Dosage: UNKNOWN DOSE
  4. LEVETIRACETAM. [Suspect]
     Active Substance: LEVETIRACETAM
     Dosage: UNKNOWN DOSE
  5. ATENOLOL. [Suspect]
     Active Substance: ATENOLOL
     Dosage: UNKNOWN DOSE

REACTIONS (1)
  - Drug abuse [Fatal]
